FAERS Safety Report 4364623-0 (Version None)
Quarter: 2004Q2

REPORT INFORMATION
  Report Type: 
  Country: None (occurrence: None)
  Receive Date: 20040521
  Receipt Date: 20040518
  Transmission Date: 20050107
  Serious: Yes (Death, Other)
  Sender: FDA-Public Use
  Company Number: 232304K04USA

PATIENT
  Age: 43 Year
  Sex: Male

DRUGS (4)
  1. REBIF [Suspect]
     Indication: MULTIPLE SCLEROSIS
     Dosage: 44 MCG, 3 IN 1 WEEKS, SUBCUTANEOUS
     Route: 058
     Dates: start: 20040401, end: 20040501
  2. METHYLPREDNISOLONE [Suspect]
     Dosage: INTRAVENOUS
     Route: 042
  3. ALPRAZOLAM [Suspect]
  4. RISPERIDONE [Suspect]

REACTIONS (5)
  - BIPOLAR DISORDER [None]
  - COMPLETED SUICIDE [None]
  - CONDITION AGGRAVATED [None]
  - DEPRESSION [None]
  - VISUAL DISTURBANCE [None]
